FAERS Safety Report 5527478-4 (Version None)
Quarter: 2007Q4

REPORT INFORMATION
  Report Type: 
  Country: None (occurrence: None)
  Receive Date: 20071128
  Receipt Date: 20071115
  Transmission Date: 20080405
  Serious: Yes (Other)
  Sender: FDA-Public Use
  Company Number: PHBS2007JP19188

PATIENT
  Age: 17 Year
  Sex: Male
  Weight: 60 kg

DRUGS (7)
  1. RITALIN [Suspect]
     Indication: ATTENTION DEFICIT/HYPERACTIVITY DISORDER
     Dosage: 20 MG, QID
     Dates: start: 19990801
  2. RITALIN [Suspect]
     Dosage: 40MG/D
     Dates: start: 20040301
  3. RITALIN [Suspect]
     Dosage: 80MG/D
     Dates: start: 20050101
  4. PEMOLINE [Concomitant]
  5. MELLARIL [Concomitant]
  6. IMPROMEN [Concomitant]
  7. TEGRETOL [Concomitant]

REACTIONS (5)
  - AGGRESSION [None]
  - DRUG ABUSER [None]
  - DRUG DEPENDENCE [None]
  - IRRITABILITY [None]
  - ROAD TRAFFIC ACCIDENT [None]
